FAERS Safety Report 9609310 (Version 2)
Quarter: 2013Q4

REPORT INFORMATION
  Report Type: Report from Study
  Country: VE (occurrence: VE)
  Receive Date: 20131009
  Receipt Date: 20131118
  Transmission Date: 20140711
  Serious: Yes (Other)
  Sender: FDA-Public Use
  Company Number: PHHY2013VE111765

PATIENT
  Age: 47 Year
  Sex: Female

DRUGS (8)
  1. AFINITOR [Suspect]
     Indication: BREAST CANCER
     Dosage: 10 MG, DAY
     Route: 048
     Dates: start: 20130412
  2. AFINITOR [Suspect]
     Dosage: 10 MG, Q48H
     Route: 048
     Dates: start: 201304
  3. LISTERINE                               /CAN/ [Concomitant]
  4. AROMASIN [Concomitant]
     Indication: BREAST CANCER
     Dosage: 25 MG, DAILY
     Route: 048
  5. AVASTIN [Concomitant]
     Indication: BREAST CANCER
     Dosage: EVERY 21 DAYS
     Dates: start: 201304
  6. BONDRONAT [Concomitant]
     Dosage: EVERY 21 DAYS
     Dates: start: 201304
  7. EUTHYROX [Concomitant]
     Indication: HYPOTHYROIDISM
     Dosage: 75 UG, DAILY
     Route: 048
  8. NATRILIX [Concomitant]
     Indication: HYPERTENSION
     Dosage: 1.5 MG, DAILY
     Route: 048

REACTIONS (7)
  - Tongue disorder [Recovering/Resolving]
  - Oral disorder [Recovering/Resolving]
  - Mouth ulceration [Recovered/Resolved]
  - Glossodynia [Recovered/Resolved]
  - Aspartate aminotransferase increased [Unknown]
  - Alanine aminotransferase increased [Unknown]
  - Blood glucose increased [Unknown]
